FAERS Safety Report 10895984 (Version 4)
Quarter: 2015Q2

REPORT INFORMATION
  Report Type: Spontaneous
  Country: IE (occurrence: IE)
  Receive Date: 20150308
  Receipt Date: 20150526
  Transmission Date: 20150821
  Serious: Yes (Hospitalization, Other)
  Sender: FDA-Public Use
  Company Number: PHFR2015IE001512

PATIENT
  Age: 58 Year
  Sex: Male

DRUGS (12)
  1. LAMOTRIGINE. [Concomitant]
     Active Substance: LAMOTRIGINE
     Indication: SCHIZOPHRENIA
     Dosage: 200 MG, QD
     Route: 048
  2. LAMOTRIGINE. [Concomitant]
     Active Substance: LAMOTRIGINE
     Indication: BIPOLAR DISORDER
  3. CLOZARIL [Suspect]
     Active Substance: CLOZAPINE
     Indication: SCHIZOAFFECTIVE DISORDER
     Dosage: 150 MG, QD
     Route: 048
  4. VENLAFAXINE [Concomitant]
     Active Substance: VENLAFAXINE HYDROCHLORIDE
     Indication: SCHIZOPHRENIA
     Dosage: 300 MG, QD
     Route: 048
  5. VANCOMYCIN [Concomitant]
     Active Substance: VANCOMYCIN
     Indication: PRODUCT USED FOR UNKNOWN INDICATION
     Route: 065
  6. SODIUM VALPROATE [Concomitant]
     Active Substance: VALPROATE SODIUM
     Indication: BIPOLAR DISORDER
  7. VENLAFAXINE [Concomitant]
     Active Substance: VENLAFAXINE HYDROCHLORIDE
     Indication: BIPOLAR DISORDER
  8. CLOZARIL [Suspect]
     Active Substance: CLOZAPINE
     Indication: BIPOLAR DISORDER
  9. QUETIAPINE [Concomitant]
     Active Substance: QUETIAPINE
     Indication: SCHIZOPHRENIA
     Dosage: 200 MG, QD
     Route: 048
  10. QUETIAPINE [Concomitant]
     Active Substance: QUETIAPINE
     Indication: BIPOLAR DISORDER
  11. CLOZARIL [Suspect]
     Active Substance: CLOZAPINE
     Indication: SCHIZOPHRENIA
     Dosage: UNK
     Route: 048
     Dates: start: 20150211, end: 20150301
  12. SODIUM VALPROATE [Concomitant]
     Active Substance: VALPROATE SODIUM
     Indication: SCHIZOPHRENIA
     Dosage: 1200 MG, QD
     Route: 048

REACTIONS (11)
  - Gait disturbance [Recovered/Resolved]
  - Dysarthria [Recovered/Resolved]
  - Injury [Unknown]
  - Dyskinesia [Recovering/Resolving]
  - Grip strength decreased [Unknown]
  - Aphasia [Recovered/Resolved]
  - Balance disorder [Recovering/Resolving]
  - Antipsychotic drug level below therapeutic [Unknown]
  - Fall [Unknown]
  - Off label use [Unknown]
  - Myoclonus [Recovering/Resolving]

NARRATIVE: CASE EVENT DATE: 20150211
